FAERS Safety Report 20669437 (Version 2)
Quarter: 2022Q4

REPORT INFORMATION
  Report Type: Spontaneous
  Country: ES (occurrence: ES)
  Receive Date: 20220404
  Receipt Date: 20221020
  Transmission Date: 20230112
  Serious: Yes (Disabling, Other)
  Sender: FDA-Public Use
  Company Number: ES-ALIMERA SCIENCES LIMITED-ES-A16013-22-000069

PATIENT
  Sex: Male

DRUGS (1)
  1. ILUVIEN [Suspect]
     Active Substance: FLUOCINOLONE ACETONIDE
     Indication: Cystoid macular oedema
     Dosage: 0.25 MICROGRAM, QD - UNKNOWN EYE
     Route: 031
     Dates: start: 20210504

REACTIONS (9)
  - Device dislocation [Recovered/Resolved]
  - Blindness [Unknown]
  - Injury corneal [Unknown]
  - Macular oedema [Unknown]
  - Condition aggravated [Unknown]
  - Medical device removal [Recovered/Resolved]
  - Ocular discomfort [Unknown]
  - Corneal oedema [Recovered/Resolved]
  - Off label use [Unknown]

NARRATIVE: CASE EVENT DATE: 20210101
